FAERS Safety Report 6583520-3 (Version None)
Quarter: 2010Q1

REPORT INFORMATION
  Report Type: 
  Country: None (occurrence: None)
  Receive Date: 20100216
  Receipt Date: 20100209
  Transmission Date: 20100710
  Serious: Yes (Hospitalization)
  Sender: FDA-Public Use
  Company Number: PHHO2009KR15198

PATIENT
  Sex: Male
  Weight: 44 kg

DRUGS (2)
  1. AFINITOR [Suspect]
     Indication: GASTRIC CANCER
     Dosage: 5 MG, BID
     Route: 048
     Dates: start: 20091116, end: 20091208
  2. XELODA [Suspect]
     Indication: GASTRIC CANCER
     Dosage: 800 MG, BID
     Route: 048
     Dates: start: 20091116, end: 20091129

REACTIONS (17)
  - DEBRIDEMENT [None]
  - DISEASE PROGRESSION [None]
  - DRUG INEFFECTIVE [None]
  - ERYTHEMA [None]
  - ESCHERICHIA INFECTION [None]
  - ILEOSTOMY [None]
  - INCISIONAL DRAINAGE [None]
  - MUSCLE FLAP OPERATION [None]
  - NECROTISING FASCIITIS [None]
  - ORCHIDECTOMY [None]
  - PENILE INFECTION [None]
  - PROTEUS INFECTION [None]
  - PSEUDOMONAS INFECTION [None]
  - SCROTAL INFECTION [None]
  - SKIN GRAFT [None]
  - SWELLING [None]
  - WOUND TREATMENT [None]
